FAERS Safety Report 15376553 (Version 2)
Quarter: 2018Q4

REPORT INFORMATION
  Report Type: Spontaneous
  Country: DE (occurrence: DE)
  Receive Date: 20180912
  Receipt Date: 20181010
  Transmission Date: 20190204
  Serious: Yes (Disabling, Other)
  Sender: FDA-Public Use
  Company Number: DE-009507513-1808DEU013701

PATIENT
  Age: 52 Year
  Sex: Female

DRUGS (23)
  1. VALGANCICLOVIR HYDROCHLORIDE. [Suspect]
     Active Substance: VALGANCICLOVIR HYDROCHLORIDE
     Indication: ANTIVIRAL PROPHYLAXIS
     Dosage: UNKNOWN
     Dates: start: 201307
  2. GANCICLOVIR. [Suspect]
     Active Substance: GANCICLOVIR
     Indication: ANTIVIRAL PROPHYLAXIS
     Route: 042
  3. VALGANCICLOVIR HYDROCHLORIDE. [Suspect]
     Active Substance: VALGANCICLOVIR HYDROCHLORIDE
     Dosage: UNKNOWN
     Dates: start: 201312
  4. TACROLIMUS. [Suspect]
     Active Substance: TACROLIMUS
     Dosage: UNKNOWN
     Dates: start: 201306, end: 201308
  5. MYCOPHENOLATE MOFETIL. [Suspect]
     Active Substance: MYCOPHENOLATE MOFETIL
     Indication: PROPHYLAXIS AGAINST TRANSPLANT REJECTION
  6. CASPOFUNGIN ACETATE. [Suspect]
     Active Substance: CASPOFUNGIN ACETATE
     Indication: PRODUCT USED FOR UNKNOWN INDICATION
     Dosage: UNKNOWN
     Dates: start: 201307
  7. INFLIXIMAB [Suspect]
     Active Substance: INFLIXIMAB
     Dosage: ONCE
     Route: 042
     Dates: start: 201310
  8. PREDNISOLONE. [Suspect]
     Active Substance: PREDNISOLONE
     Indication: IMMUNOSUPPRESSION
     Dosage: INTRAOPERATIVELY
     Dates: start: 201310, end: 201310
  9. TACROLIMUS. [Suspect]
     Active Substance: TACROLIMUS
     Indication: IMMUNOSUPPRESSION
     Dosage: TARGET TROUGH LEVEL 3-4 NG/MICROLITRE
     Dates: start: 201309, end: 201312
  10. VALGANCICLOVIR HYDROCHLORIDE. [Suspect]
     Active Substance: VALGANCICLOVIR HYDROCHLORIDE
     Indication: ANTIVIRAL PROPHYLAXIS
     Dosage: UNKNOWN
  11. VALGANCICLOVIR HYDROCHLORIDE. [Suspect]
     Active Substance: VALGANCICLOVIR HYDROCHLORIDE
     Dosage: UNKNOWN
     Dates: start: 201307
  12. PREDNISOLONE. [Suspect]
     Active Substance: PREDNISOLONE
     Dosage: TAPERED DOWN TO MAINTENANCE DOSE OF 5 MG/D
     Dates: end: 201305
  13. TACROLIMUS. [Suspect]
     Active Substance: TACROLIMUS
     Indication: PROPHYLAXIS AGAINST TRANSPLANT REJECTION
     Dosage: INITIAL TARGET TROUGH LEVEL 8?10 AND 6?7 NG/MICROLITRES
     Dates: end: 201305
  14. MYCOPHENOLATE MOFETIL. [Suspect]
     Active Substance: MYCOPHENOLATE MOFETIL
     Indication: IMMUNOSUPPRESSION
     Dosage: 2000 MG / DAY
     Dates: end: 201305
  15. VALGANCICLOVIR HYDROCHLORIDE. [Suspect]
     Active Substance: VALGANCICLOVIR HYDROCHLORIDE
     Dosage: UNKNOWN
     Dates: start: 201312
  16. PREDNISOLONE. [Suspect]
     Active Substance: PREDNISOLONE
     Dosage: 1000 MG, INTRAOPERATIVELY
  17. EVEROLIMUS. [Suspect]
     Active Substance: EVEROLIMUS
     Indication: IMMUNOSUPPRESSION
     Dosage: TARGET TROUGH LEVEL2-3 NG/MICROLITRE
     Dates: start: 201309, end: 201312
  18. FOSCARNET SODIUM. [Suspect]
     Active Substance: FOSCARNET SODIUM
     Indication: ANTIVIRAL PROPHYLAXIS
     Dosage: UNKNOWN
     Dates: start: 201309
  19. VALGANCICLOVIR HYDROCHLORIDE. [Suspect]
     Active Substance: VALGANCICLOVIR HYDROCHLORIDE
     Dosage: UNKNOWN
  20. GANCICLOVIR. [Suspect]
     Active Substance: GANCICLOVIR
     Indication: ANTIVIRAL PROPHYLAXIS
     Dosage: UNKNOWN
     Route: 042
     Dates: start: 201307, end: 201312
  21. GANCICLOVIR. [Suspect]
     Active Substance: GANCICLOVIR
     Route: 042
  22. ALEMTUZUMAB [Suspect]
     Active Substance: ALEMTUZUMAB
     Indication: IMMUNOSUPPRESSION
     Dosage: D 0 AND 1
     Dates: end: 201305
  23. ALEMTUZUMAB [Suspect]
     Active Substance: ALEMTUZUMAB
     Indication: PROPHYLAXIS AGAINST TRANSPLANT REJECTION

REACTIONS (9)
  - Organ failure [Unknown]
  - Transplant rejection [Unknown]
  - Gastritis [Unknown]
  - Cytomegalovirus infection [Recovered/Resolved]
  - Cytomegalovirus gastritis [Unknown]
  - Leukaemia [Unknown]
  - Drug ineffective [Unknown]
  - Cytomegalovirus oesophagitis [Recovered/Resolved]
  - Oesophageal candidiasis [Recovered/Resolved]
